FAERS Safety Report 23032210 (Version 3)
Quarter: 2024Q2

REPORT INFORMATION
  Report Type: Spontaneous
  Country: CN (occurrence: CN)
  Receive Date: 20231005
  Receipt Date: 20240607
  Transmission Date: 20240716
  Serious: Yes (Life-Threatening, Hospitalization, Other)
  Sender: FDA-Public Use
  Company Number: CN-Accord-381968

PATIENT
  Age: 56 Year
  Sex: Male

DRUGS (9)
  1. TACROLIMUS [Interacting]
     Active Substance: TACROLIMUS
     Indication: Immunosuppression
     Dosage: TWICE DAILY (BID)?(SYMPTOM ONSET AND AT HOME)
     Route: 048
  2. NIRMATRELVIR\RITONAVIR [Interacting]
     Active Substance: NIRMATRELVIR\RITONAVIR
     Indication: COVID-19
     Dosage: ADMINISTERED AS 300 MG OF NIRMATRELVIR COMBINED WITH 100  MG OF RITONAVIR BID
     Route: 048
  3. MYCOPHENOLIC ACID [Concomitant]
     Active Substance: MYCOPHENOLIC ACID
     Indication: Immunosuppression
     Dosage: 360 MG BID
     Route: 048
  4. INSULIN NOS [Concomitant]
     Active Substance: INSULIN NOS
     Indication: Type 2 diabetes mellitus
     Dosage: FROM 18-MAY TO 30 MAY EXCEPT 24 MAY AND 25 MAY (QID)
     Route: 058
  5. TACROLIMUS [Interacting]
     Active Substance: TACROLIMUS
     Indication: Immunosuppression
     Route: 048
  6. TACROLIMUS [Interacting]
     Active Substance: TACROLIMUS
     Indication: Immunosuppression
     Dosage: ON DAY 1, DAY 3 AND DAY 11 ADJUSTED TO A QUARTER OF THE PREVIOUS DOSES
     Route: 048
  7. MYCOPHENOLIC ACID [Concomitant]
     Active Substance: MYCOPHENOLIC ACID
     Indication: Immunosuppression
     Dosage: ON DAY 1, DAY 3 AND DAY 11
     Route: 048
  8. MYCOPHENOLIC ACID [Concomitant]
     Active Substance: MYCOPHENOLIC ACID
     Indication: Immunosuppression
     Dosage: SYMPTOM ONSET AND AT HOME
     Route: 048
  9. INSULIN NOS [Concomitant]
     Active Substance: INSULIN NOS
     Indication: Type 2 diabetes mellitus
     Dosage: CONTINUOUS PUMPING ON DAY4 AND 5 24 MAY AND 25 MAY

REACTIONS (6)
  - Acute kidney injury [Recovered/Resolved]
  - Diarrhoea [Recovered/Resolved]
  - Diabetic ketoacidosis [Recovered/Resolved]
  - Hyperglycaemic hyperosmolar nonketotic syndrome [Recovered/Resolved]
  - Toxicity to various agents [Unknown]
  - Drug interaction [Recovered/Resolved]
